FAERS Safety Report 23569450 (Version 1)
Quarter: 2024Q1

REPORT INFORMATION
  Report Type: Spontaneous
  Country: FR (occurrence: FR)
  Receive Date: 20240227
  Receipt Date: 20240227
  Transmission Date: 20240410
  Serious: Yes (Other)
  Sender: FDA-Public Use
  Company Number: FR-TEVA-VS-3159619

PATIENT
  Age: 24 Year
  Sex: Female

DRUGS (1)
  1. COPAXONE [Suspect]
     Active Substance: GLATIRAMER ACETATE
     Indication: Product used for unknown indication
     Route: 065
     Dates: start: 2023

REACTIONS (8)
  - Near death experience [Unknown]
  - Tinnitus [Unknown]
  - Hyperhidrosis [Unknown]
  - Tachypnoea [Unknown]
  - Tremor [Unknown]
  - Vomiting [Unknown]
  - Asthenia [Unknown]
  - Palpitations [Unknown]
